FAERS Safety Report 5692928-X (Version None)
Quarter: 2008Q2

REPORT INFORMATION
  Report Type: 
  Country: None (occurrence: None)
  Receive Date: 20080325
  Receipt Date: 20071217
  Transmission Date: 20081010
  Serious: Yes (Other)
  Sender: FDA-Public Use
  Company Number: 14017263

PATIENT
  Sex: Male

DRUGS (5)
  1. EMSAM [Suspect]
     Dosage: 6 MILLIGRAM,1/1 DAY
     Dates: start: 20061001
  2. SEROQUEL [Suspect]
     Dosage: 300 MILLIGRAM,1/1 DAY ORAL
     Route: 048
     Dates: start: 20061108
  3. LAMICTAL [Concomitant]
  4. CLONAZEPAM [Concomitant]
  5. VYTORIN [Concomitant]

REACTIONS (3)
  - BLOOD PRESSURE DECREASED [None]
  - DISORIENTATION [None]
  - SYNCOPE [None]
